FAERS Safety Report 10408732 (Version 4)
Quarter: 2016Q2

REPORT INFORMATION
  Report Type: Spontaneous
  Country: GB (occurrence: GB)
  Receive Date: 20140826
  Receipt Date: 20160530
  Transmission Date: 20160815
  Serious: Yes (Death, Other)
  Sender: FDA-Public Use
  Company Number: GB-JNJFOC-20140817044

PATIENT
  Age: 47 Year
  Sex: Male

DRUGS (31)
  1. METOCLOPRAMIDE. [Concomitant]
     Active Substance: METOCLOPRAMIDE
     Route: 065
     Dates: start: 20140715, end: 20140721
  2. ETRAVIRINE [Concomitant]
     Active Substance: ETRAVIRINE
     Route: 065
     Dates: start: 201302, end: 20140809
  3. LORAZEPAM. [Concomitant]
     Active Substance: LORAZEPAM
     Route: 065
     Dates: start: 20140712, end: 20140808
  4. CYCLIZINE [Concomitant]
     Active Substance: CYCLIZINE
     Route: 065
     Dates: start: 20140721, end: 20140724
  5. DIFFLAM [Concomitant]
     Active Substance: BENZYDAMINE HYDROCHLORIDE
     Route: 065
     Dates: start: 20140723, end: 20140808
  6. MIRTAZAPINE. [Concomitant]
     Active Substance: MIRTAZAPINE
     Route: 065
     Dates: start: 20140724, end: 20140804
  7. RITONAVIR. [Concomitant]
     Active Substance: RITONAVIR
     Route: 065
     Dates: start: 201302, end: 20140809
  8. LEVOMEPROMAZINE [Concomitant]
     Active Substance: LEVOMEPROMAZINE
     Route: 065
     Dates: start: 20140714, end: 20140806
  9. MAGNESIUM ALGINATE [Concomitant]
     Active Substance: MAGNESIUM ALGINATE
     Route: 065
     Dates: start: 20140807, end: 20140808
  10. MITOMYCIN. [Concomitant]
     Active Substance: MITOMYCIN
     Route: 065
     Dates: start: 20140805, end: 20140805
  11. PHOSPHATE [Concomitant]
     Active Substance: UNSPECIFIED INGREDIENT
     Route: 065
     Dates: start: 20140716, end: 201407
  12. ZOPLICONE [Concomitant]
     Active Substance: ZOPICLONE
     Route: 065
     Dates: start: 20140723, end: 20140731
  13. ENTONOX [Concomitant]
     Active Substance: NITROUS OXIDE\OXYGEN
     Route: 065
     Dates: start: 20140713, end: 20140714
  14. RALTEGRAVIR. [Concomitant]
     Active Substance: RALTEGRAVIR
     Route: 065
     Dates: start: 20140725, end: 20140808
  15. FRAGMIN [Concomitant]
     Active Substance: DALTEPARIN SODIUM
     Route: 065
     Dates: start: 20140715, end: 20140808
  16. MIDAZOLAM [Concomitant]
     Active Substance: MIDAZOLAM\MIDAZOLAM HYDROCHLORIDE
     Route: 065
     Dates: start: 20140716, end: 20140804
  17. DULCOEASE [Suspect]
     Active Substance: DOCUSATE SODIUM
     Indication: CONSTIPATION
     Route: 048
     Dates: start: 20140713
  18. LACTULOSE. [Concomitant]
     Active Substance: LACTULOSE
     Indication: PRODUCT USED FOR UNKNOWN INDICATION
     Route: 065
     Dates: start: 20031217
  19. BUSCOPAN [Concomitant]
     Active Substance: BUTYLSCOPOLAMINE BROMIDE
     Route: 065
     Dates: start: 20140711, end: 20140806
  20. DARUNAVIR [Concomitant]
     Active Substance: DARUNAVIR
     Route: 065
     Dates: start: 201302, end: 20140809
  21. FLUOROURACIL. [Concomitant]
     Active Substance: FLUOROURACIL
     Route: 065
     Dates: start: 20140805, end: 20140809
  22. GLYCERYL TRINITRATE [Concomitant]
     Active Substance: NITROGLYCERIN
     Route: 065
     Dates: start: 20140807, end: 20140807
  23. SENNA [Suspect]
     Active Substance: SENNA LEAF\SENNOSIDES\SENNOSIDES A AND B
     Indication: CONSTIPATION
     Route: 048
     Dates: start: 20140716
  24. ONDANSETRON [Concomitant]
     Active Substance: ONDANSETRON
     Route: 065
     Dates: start: 20140805, end: 20140808
  25. TENOFOVIR [Concomitant]
     Active Substance: TENOFOVIR
     Route: 065
     Dates: start: 201302, end: 20140809
  26. FENTANYL. [Suspect]
     Active Substance: FENTANYL
     Indication: PAIN
     Route: 062
     Dates: start: 20140321
  27. HALOPERIDOL. [Concomitant]
     Active Substance: HALOPERIDOL
     Route: 065
     Dates: start: 20140714, end: 20140716
  28. OMEPRAZOLE. [Concomitant]
     Active Substance: OMEPRAZOLE
     Route: 065
     Dates: start: 20140715, end: 20140808
  29. PANCREATIN [Concomitant]
     Active Substance: PANCRELIPASE
     Route: 065
     Dates: start: 20140610, end: 20140808
  30. DEXAMETHASONE. [Concomitant]
     Active Substance: DEXAMETHASONE
     Route: 065
     Dates: start: 20140713, end: 20140808
  31. LIDOCAINE HYDROCHLORIDE. [Concomitant]
     Active Substance: LIDOCAINE HYDROCHLORIDE
     Route: 065
     Dates: start: 20140610, end: 201407

REACTIONS (10)
  - Dry mouth [Unknown]
  - Blood phosphorus decreased [Unknown]
  - Chest pain [Unknown]
  - Death [Fatal]
  - Abdominal pain [Unknown]
  - Vomiting [Unknown]
  - Nausea [Unknown]
  - Urinary retention [Unknown]
  - Agitation [Unknown]
  - Gastrooesophageal reflux disease [Unknown]

NARRATIVE: CASE EVENT DATE: 20140809
